FAERS Safety Report 11427922 (Version 1)
Quarter: 2015Q3

REPORT INFORMATION
  Report Type: Spontaneous
  Country: US (occurrence: US)
  Receive Date: 20150828
  Receipt Date: 20150828
  Transmission Date: 20151125
  Serious: No
  Sender: FDA-Public Use
  Company Number: US-AMGEN-USASP2015086796

PATIENT
  Age: 87 Year
  Sex: Female

DRUGS (1)
  1. ENBREL [Suspect]
     Active Substance: ETANERCEPT
     Indication: PRODUCT USED FOR UNKNOWN INDICATION
     Dosage: 50 MG, QWK
     Route: 065
     Dates: start: 2000

REACTIONS (8)
  - Eyelid ptosis [Unknown]
  - Eyelid oedema [Unknown]
  - Eye disorder [Unknown]
  - Injection site pain [Unknown]
  - Erythema of eyelid [Unknown]
  - Fear of injection [Unknown]
  - Blepharitis [Unknown]
  - Discomfort [Unknown]

NARRATIVE: CASE EVENT DATE: 201502
